FAERS Safety Report 10635120 (Version 2)
Quarter: 2015Q1

REPORT INFORMATION
  Report Type: Spontaneous
  Country: US (occurrence: US)
  Receive Date: 20141205
  Receipt Date: 20150108
  Transmission Date: 20150720
  Serious: Yes (Other)
  Sender: FDA-Public Use
  Company Number: US-SA-2014SA167365

PATIENT
  Age: 73 Year
  Sex: Female

DRUGS (2)
  1. NASACORT ALLERGY 24HR [Suspect]
     Active Substance: TRIAMCINOLONE ACETONIDE
     Indication: UPPER-AIRWAY COUGH SYNDROME
     Dosage: 1 SPRAY/NOSTRIL IN THE MORNING AS NEEDED.
     Route: 045
  2. NASACORT ALLERGY 24HR [Suspect]
     Active Substance: TRIAMCINOLONE ACETONIDE
     Indication: UPPER-AIRWAY COUGH SYNDROME
     Dosage: 2 SPRAYS/NOSTRIL IN THE MORNING
     Route: 045

REACTIONS (2)
  - Atrial fibrillation [Recovered/Resolved]
  - Palpitations [Recovered/Resolved]

NARRATIVE: CASE EVENT DATE: 20141202
